FAERS Safety Report 25323522 (Version 2)
Quarter: 2025Q2

REPORT INFORMATION
  Report Type: Spontaneous
  Country: PL (occurrence: PL)
  Receive Date: 20250516
  Receipt Date: 20250529
  Transmission Date: 20250717
  Serious: Yes (Other)
  Sender: ALEXION PHARMACEUTICALS
  Company Number: PL-RECORDATI-2025003236

PATIENT
  Age: 77 Year

DRUGS (15)
  1. DAPAGLIFLOZIN [Suspect]
     Active Substance: DAPAGLIFLOZIN
     Route: 065
  2. METOPROLOL [Suspect]
     Active Substance: METOPROLOL
     Route: 065
  3. ROSUVASTATIN [Suspect]
     Active Substance: ROSUVASTATIN
     Route: 065
  4. RAMIPRIL [Suspect]
     Active Substance: RAMIPRIL
     Route: 065
  5. PANTOPRAZOLE [Suspect]
     Active Substance: PANTOPRAZOLE
     Indication: Ischaemic stroke
     Route: 065
  6. PANTOPRAZOLE [Suspect]
     Active Substance: PANTOPRAZOLE
     Indication: Cardiac failure
     Route: 065
  7. PANTOPRAZOLE [Suspect]
     Active Substance: PANTOPRAZOLE
     Indication: Sleep disorder
  8. ASPIRIN [Suspect]
     Active Substance: ASPIRIN
     Indication: Ischaemic stroke
     Route: 065
  9. ASPIRIN [Suspect]
     Active Substance: ASPIRIN
     Indication: Cardiac failure
     Route: 065
  10. ASPIRIN [Suspect]
     Active Substance: ASPIRIN
     Indication: Sleep disorder
  11. TORSEMIDE [Suspect]
     Active Substance: TORSEMIDE
     Indication: Ischaemic stroke
  12. TORSEMIDE [Suspect]
     Active Substance: TORSEMIDE
     Indication: Cardiac failure
  13. TORSEMIDE [Suspect]
     Active Substance: TORSEMIDE
     Indication: Sleep disorder
  14. ESTAZOLAM [Concomitant]
     Active Substance: ESTAZOLAM
     Indication: Insomnia
     Route: 065
  15. ESTAZOLAM [Concomitant]
     Active Substance: ESTAZOLAM
     Route: 065

REACTIONS (2)
  - Disease risk factor [Unknown]
  - Drug-disease interaction [Unknown]
